FAERS Safety Report 6861462-3 (Version None)
Quarter: 2010Q3

REPORT INFORMATION
  Report Type: 
  Country: None (occurrence: None)
  Receive Date: 20100720
  Receipt Date: 20100713
  Transmission Date: 20110219
  Serious: Yes (Disabling, Other)
  Sender: FDA-Public Use
  Company Number: FR-AMGEN-QUU423977

PATIENT
  Sex: Male

DRUGS (1)
  1. NPLATE [Suspect]
     Indication: IDIOPATHIC THROMBOCYTOPENIC PURPURA
     Route: 058
     Dates: start: 20100126, end: 20100414

REACTIONS (3)
  - OPTIC NEUROPATHY [None]
  - PAPILLOEDEMA [None]
  - VISION BLURRED [None]
